FAERS Safety Report 5410571-4 (Version None)
Quarter: 2007Q3

REPORT INFORMATION
  Report Type: 
  Country: None (occurrence: None)
  Receive Date: 20070810
  Receipt Date: 20070321
  Transmission Date: 20080115
  Serious: Yes (Other)
  Sender: FDA-Public Use
  Company Number: A0644109A

PATIENT
  Age: 21 Year
  Sex: Male

DRUGS (3)
  1. PAXIL [Suspect]
     Indication: PANIC DISORDER
     Route: 048
     Dates: start: 20000101
  2. PAXIL CR [Suspect]
     Indication: PANIC DISORDER
     Route: 048
  3. KLONOPIN [Concomitant]

REACTIONS (5)
  - DEPENDENCE [None]
  - DRUG WITHDRAWAL SYNDROME [None]
  - MEDICATION ERROR [None]
  - NAUSEA [None]
  - PAIN [None]
